FAERS Safety Report 10807884 (Version 1)
Quarter: 2015Q1

REPORT INFORMATION
  Report Type: Report from Study
  Country: US (occurrence: US)
  Receive Date: 20150217
  Receipt Date: 20150217
  Transmission Date: 20150721
  Serious: No
  Sender: FDA-Public Use
  Company Number: US-ABBVIE-14K-163-1256532-00

PATIENT
  Age: 49 Year
  Sex: Female

DRUGS (8)
  1. MELOXICAM. [Concomitant]
     Active Substance: MELOXICAM
     Indication: RHEUMATOID ARTHRITIS
  2. HUMIRA [Suspect]
     Active Substance: ADALIMUMAB
     Indication: RHEUMATOID ARTHRITIS
     Dates: start: 20140429
  3. VITAMINS NOS [Concomitant]
     Active Substance: VITAMINS
     Indication: PRODUCT USED FOR UNKNOWN INDICATION
  4. DIPHENHYDRAMINE [Suspect]
     Active Substance: DIPHENHYDRAMINE
     Indication: SEASONAL ALLERGY
     Dosage: DAILY
  5. CARISOPRODOL. [Concomitant]
     Active Substance: CARISOPRODOL
     Indication: NECK PAIN
  6. FOLIC ACID. [Concomitant]
     Active Substance: FOLIC ACID
     Indication: PROPHYLAXIS
  7. FOLIC ACID. [Concomitant]
     Active Substance: FOLIC ACID
     Indication: GASTRIC DISORDER
  8. METHOTREXATE [Concomitant]
     Active Substance: METHOTREXATE
     Indication: RHEUMATOID ARTHRITIS

REACTIONS (12)
  - Sinus disorder [Recovering/Resolving]
  - Pharyngeal oedema [Recovering/Resolving]
  - Pruritus [Recovering/Resolving]
  - Lacrimation increased [Recovering/Resolving]
  - Throat irritation [Not Recovered/Not Resolved]
  - Cough [Recovering/Resolving]
  - Upper-airway cough syndrome [Not Recovered/Not Resolved]
  - Drug effect incomplete [Unknown]
  - Pain [Recovering/Resolving]
  - Feeling abnormal [Recovering/Resolving]
  - Pyrexia [Recovering/Resolving]
  - Influenza [Recovering/Resolving]

NARRATIVE: CASE EVENT DATE: 2014
